FAERS Safety Report 24090038 (Version 1)
Quarter: 2024Q3

REPORT INFORMATION
  Report Type: Spontaneous
  Country: US (occurrence: US)
  Receive Date: 20240715
  Receipt Date: 20240715
  Transmission Date: 20241016
  Serious: Yes (Death)
  Sender: SPECGX
  Company Number: US-SPECGX-T202401515

PATIENT

DRUGS (1)
  1. FENTANYL TRANSDERMAL SYSTEM [Suspect]
     Active Substance: FENTANYL
     Indication: Product used for unknown indication
     Dosage: 25 UG/HR
     Route: 062

REACTIONS (2)
  - Death [Fatal]
  - Wrong technique in product usage process [Unknown]
